FAERS Safety Report 18471463 (Version 5)
Quarter: 2021Q1

REPORT INFORMATION
  Report Type: Spontaneous
  Country: US (occurrence: US)
  Receive Date: 20201106
  Receipt Date: 20210210
  Transmission Date: 20210419
  Serious: Yes (Other)
  Sender: FDA-Public Use
  Company Number: US-BIOGEN-2020BI00943316

PATIENT
  Age: 59 Year
  Sex: Female

DRUGS (4)
  1. PLEGRIDY [Suspect]
     Active Substance: PEGINTERFERON BETA-1A
     Indication: MULTIPLE SCLEROSIS
     Route: 058
     Dates: start: 20201024, end: 20201106
  2. PLEGRIDY [Suspect]
     Active Substance: PEGINTERFERON BETA-1A
     Route: 065
     Dates: start: 20201022
  3. PLEGRIDY [Suspect]
     Active Substance: PEGINTERFERON BETA-1A
     Indication: MULTIPLE SCLEROSIS
     Route: 065
     Dates: start: 20201022
  4. PLEGRIDY [Suspect]
     Active Substance: PEGINTERFERON BETA-1A
     Route: 058
     Dates: start: 20201107

REACTIONS (12)
  - Gastrointestinal disorder [Unknown]
  - Hyperhidrosis [Unknown]
  - Vomiting [Unknown]
  - Weight decreased [Not Recovered/Not Resolved]
  - Supraventricular tachycardia [Unknown]
  - Decreased immune responsiveness [Unknown]
  - Headache [Unknown]
  - Influenza [Unknown]
  - Pain [Unknown]
  - Illness [Unknown]
  - Multiple sclerosis [Unknown]
  - Dehydration [Unknown]

NARRATIVE: CASE EVENT DATE: 20201028
